FAERS Safety Report 8130983-8 (Version None)
Quarter: 2012Q1

REPORT INFORMATION
  Report Type: 
  Country: None (occurrence: None)
  Receive Date: 20120209
  Receipt Date: 20120209
  Transmission Date: 20120608
  Serious: No
  Sender: FDA-Public Use
  Company Number: None

PATIENT
  Sex: Female
  Weight: 80.2867 kg

DRUGS (2)
  1. IBUPROFEN [Suspect]
     Indication: HEADACHE
     Dosage: 200 MG ONCE TOOK 2;  200 MG TOOK 1
     Dates: start: 20120113
  2. IBUPROFEN [Suspect]
     Indication: HEADACHE
     Dosage: 200 MG ONCE TOOK 2;  200 MG TOOK 1
     Dates: start: 20120112

REACTIONS (1)
  - UNEVALUABLE EVENT [None]
